FAERS Safety Report 17024215 (Version 1)
Quarter: 2019Q4

REPORT INFORMATION
  Report Type: Spontaneous
  Country: IT (occurrence: IT)
  Receive Date: 20191113
  Receipt Date: 20191113
  Transmission Date: 20200122
  Serious: Yes (Other)
  Sender: FDA-Public Use
  Company Number: IT-TEVA-2019-IT-1121499

PATIENT
  Age: 64 Year
  Sex: Female
  Weight: 87 kg

DRUGS (8)
  1. DULOXETINE. [Suspect]
     Active Substance: DULOXETINE
     Indication: DIABETIC NEUROPATHY
     Dosage: 60 MILLIGRAM,
     Route: 048
     Dates: start: 20190801, end: 20190826
  2. OMEPRAZOLE. [Concomitant]
     Active Substance: OMEPRAZOLE
     Dosage: 20 MILLIGRAM
     Route: 048
     Dates: start: 20190801
  3. LYRICA [Concomitant]
     Active Substance: PREGABALIN
     Dosage: 150 MILLIGRAM
     Route: 048
     Dates: start: 20190822
  4. APIDRA [Concomitant]
     Active Substance: INSULIN GLULISINE
     Dosage: 24 IU
     Route: 058
     Dates: start: 20190810
  5. LATANOPROST   DOC [Concomitant]
     Dosage: 1 GTT
     Route: 047
     Dates: start: 20190801
  6. RIVOTRIL [Concomitant]
     Active Substance: CLONAZEPAM
     Dosage: 30 GTT
     Route: 048
     Dates: start: 20190814
  7. FUROSEMIDE. [Concomitant]
     Active Substance: FUROSEMIDE
     Dosage: 50 MILLIGRAM
     Route: 048
     Dates: start: 20190801
  8. KANRENOL [Concomitant]
     Active Substance: CANRENOATE POTASSIUM
     Dosage: 25 MILLIGRAM
     Route: 048
     Dates: start: 20190801

REACTIONS (1)
  - Hallucinations, mixed [Recovering/Resolving]

NARRATIVE: CASE EVENT DATE: 20190826
